FAERS Safety Report 8169740-5 (Version None)
Quarter: 2012Q1

REPORT INFORMATION
  Report Type: 
  Country: None (occurrence: None)
  Receive Date: 20120228
  Receipt Date: 20120217
  Transmission Date: 20120608
  Serious: Yes (Other)
  Sender: FDA-Public Use
  Company Number: CA-JNJFOC-20120209985

PATIENT
  Sex: Female
  Weight: 66.5 kg

DRUGS (2)
  1. REMICADE [Suspect]
     Indication: CROHN'S DISEASE
     Dosage: 16TH INFUSION
     Route: 042
     Dates: start: 20120217
  2. REMICADE [Suspect]
     Route: 042

REACTIONS (2)
  - ROAD TRAFFIC ACCIDENT [None]
  - WRIST FRACTURE [None]
